FAERS Safety Report 24384398 (Version 1)
Quarter: 2024Q4

REPORT INFORMATION
  Report Type: Spontaneous
  Country: AT (occurrence: AT)
  Receive Date: 20241001
  Receipt Date: 20241001
  Transmission Date: 20250115
  Serious: Yes (Other)
  Sender: INCYTE
  Company Number: AT-002147023-NVSC2024AT192473

PATIENT

DRUGS (2)
  1. RUXOLITINIB [Suspect]
     Active Substance: RUXOLITINIB
     Indication: Myeloproliferative neoplasm
     Dosage: 15 MG (1-0-1)
     Route: 065
  2. RUXOLITINIB [Suspect]
     Active Substance: RUXOLITINIB
     Dosage: 10 MG (1-0-1)
     Route: 065

REACTIONS (12)
  - Anaemia [Unknown]
  - Fatigue [Recovering/Resolving]
  - Fibrosis [Unknown]
  - Blood lactate dehydrogenase increased [Unknown]
  - Leukocytosis [Unknown]
  - White blood cell count decreased [Unknown]
  - Liver disorder [Unknown]
  - Lymphadenopathy [Unknown]
  - Pruritus [Recovered/Resolved]
  - Splenomegaly [Unknown]
  - Extramedullary haemopoiesis [Unknown]
  - Thrombocytopenia [Unknown]
